FAERS Safety Report 7532354-1 (Version None)
Quarter: 2011Q2

REPORT INFORMATION
  Report Type: 
  Country: None (occurrence: None)
  Receive Date: 20110608
  Receipt Date: 20110602
  Transmission Date: 20111010
  Serious: Yes (Hospitalization)
  Sender: FDA-Public Use
  Company Number: FR-PFIZER INC-2010120677

PATIENT
  Age: 32 Year
  Sex: Female

DRUGS (13)
  1. SOLU-MEDROL [Suspect]
     Dosage: UNK
     Route: 042
     Dates: start: 20100820, end: 20100825
  2. LASIX [Suspect]
     Dosage: UNK
     Route: 042
     Dates: start: 20100820
  3. ORGARAN [Suspect]
     Dosage: UNK
     Route: 058
     Dates: start: 20100818, end: 20100820
  4. FENTANYL [Suspect]
     Dosage: UNK
     Route: 042
     Dates: start: 20100819, end: 20100822
  5. MIDAZOLAM HYDROCHLORIDE [Suspect]
     Dosage: UNK
     Route: 042
     Dates: start: 20100818, end: 20100822
  6. TRANXENE [Suspect]
     Dosage: UNK
     Dates: start: 20100822, end: 20100825
  7. PERINDOPRIL ERBUMINE [Concomitant]
  8. AUGMENTIN '125' [Suspect]
     Dosage: UNK
     Route: 042
     Dates: start: 20100818, end: 20100823
  9. LOVENOX [Suspect]
     Dosage: UNK
     Route: 058
     Dates: start: 20100820, end: 20100826
  10. NEXIUM [Concomitant]
  11. PANTOPRAZOLE SODIUM [Suspect]
     Dosage: UNK
     Route: 042
     Dates: start: 20100818, end: 20100824
  12. DIPRIVAN [Suspect]
     Dosage: UNK
     Route: 042
     Dates: start: 20100822, end: 20100823
  13. CLAFORAN [Suspect]
     Dosage: UNK
     Route: 042
     Dates: start: 20100823, end: 20100825

REACTIONS (5)
  - LIPASE INCREASED [None]
  - ALANINE AMINOTRANSFERASE INCREASED [None]
  - BLOOD AMYLASE INCREASED [None]
  - ASPARTATE AMINOTRANSFERASE INCREASED [None]
  - PANCREATITIS [None]
